FAERS Safety Report 8100689-X (Version None)
Quarter: 2012Q1

REPORT INFORMATION
  Report Type: 
  Country: None (occurrence: None)
  Receive Date: 20120129
  Receipt Date: 20111121
  Transmission Date: 20120608
  Serious: Yes (Other)
  Sender: FDA-Public Use
  Company Number: US-ABBOTT-11P-163-0703960-00

PATIENT
  Age: 37 Year
  Sex: Female

DRUGS (5)
  1. HUMIRA [Suspect]
  2. DEMEROL [Suspect]
     Indication: COLONOSCOPY
     Dates: start: 20111101, end: 20111101
  3. LIALDA [Concomitant]
     Indication: PRODUCT USED FOR UNKNOWN INDICATION
     Dosage: 3-6 GRAMS DAILY
  4. PENTASA [Concomitant]
     Indication: CROHN'S DISEASE
     Dosage: 4- 500MG TABLETS DAILY
  5. HUMIRA [Suspect]
     Indication: CROHN'S DISEASE
     Dates: start: 20091101

REACTIONS (11)
  - INJECTION SITE PAIN [None]
  - PHARYNGITIS STREPTOCOCCAL [None]
  - INJECTION SITE MASS [None]
  - DEHYDRATION [None]
  - PYREXIA [None]
  - FEELING OF BODY TEMPERATURE CHANGE [None]
  - VIRAL INFECTION [None]
  - INJECTION SITE HAEMORRHAGE [None]
  - VOMITING [None]
  - INFECTION [None]
  - NAUSEA [None]
